FAERS Safety Report 20019209 (Version 4)
Quarter: 2022Q1

REPORT INFORMATION
  Report Type: Report from Study
  Country: ES (occurrence: ES)
  Receive Date: 20211101
  Receipt Date: 20220216
  Transmission Date: 20220423
  Serious: Yes (Death, Life-Threatening, Hospitalization, Other)
  Sender: FDA-Public Use
  Company Number: ES-BB2121-MM-007-2011001-20211026-0005SG

PATIENT
  Age: 56 Year
  Sex: Male
  Weight: 145 kg

DRUGS (26)
  1. INVESTIGATIONAL PRODUCT [Suspect]
     Active Substance: INVESTIGATIONAL PRODUCT
     Indication: Plasma cell myeloma
     Dosage: 450 10^6 CAR+ T CELLS X ONCE
     Route: 042
     Dates: start: 20211021, end: 20211021
  2. CYCLOPHOSPHAMIDE [Suspect]
     Active Substance: CYCLOPHOSPHAMIDE
     Indication: Plasma cell myeloma
     Dosage: 300 MG/M2 X 1 X 1 DAYS
     Route: 042
     Dates: start: 20211016, end: 20211016
  3. CYCLOPHOSPHAMIDE [Suspect]
     Active Substance: CYCLOPHOSPHAMIDE
     Dosage: 300 MG/M2 X 1 X 1 DAYS
     Route: 042
     Dates: start: 20211017, end: 20211017
  4. CYCLOPHOSPHAMIDE [Suspect]
     Active Substance: CYCLOPHOSPHAMIDE
     Dosage: 300 MG/M2 X 1 X 1 DAYS
     Route: 042
     Dates: start: 20211018, end: 20211018
  5. FLUDARABINE [Suspect]
     Active Substance: FLUDARABINE PHOSPHATE
     Indication: Plasma cell myeloma
     Dosage: 30 MG/M2 X 1 X 1 DAYS
     Route: 042
     Dates: start: 20211016, end: 20211016
  6. FLUDARABINE [Suspect]
     Active Substance: FLUDARABINE PHOSPHATE
     Dosage: 30 MG/M2 X 1 X 1 DAYS
     Route: 042
     Dates: start: 20211017, end: 20211017
  7. FLUDARABINE [Suspect]
     Active Substance: FLUDARABINE PHOSPHATE
     Dosage: 30 MG/M2 X 1 X 1 DAYS
     Route: 042
     Dates: start: 20211018, end: 20211018
  8. INVESTIGATIONAL PRODUCT [Suspect]
     Active Substance: INVESTIGATIONAL PRODUCT
     Indication: Plasma cell myeloma
     Dosage: 25 MG X 1 X 1 DAYS
     Route: 048
     Dates: start: 20211021, end: 20211021
  9. INVESTIGATIONAL PRODUCT [Suspect]
     Active Substance: INVESTIGATIONAL PRODUCT
     Dosage: 25 MG X 1 X 1 DAYS
     Route: 048
     Dates: start: 20211023, end: 20211023
  10. PERINDOPRILE/INDAPAMIDE [Concomitant]
     Indication: Hypertension
     Dosage: 2.5/0.625 MG X 1 X 1 DAYS
     Route: 048
     Dates: end: 20211027
  11. TRAZODONE [Concomitant]
     Active Substance: TRAZODONE HYDROCHLORIDE
     Indication: Prophylaxis
     Dosage: 150 MG X 1 X 1 DAYS
     Route: 048
     Dates: end: 20211027
  12. AMIODARONE [Concomitant]
     Active Substance: AMIODARONE
     Indication: Arrhythmia prophylaxis
     Dosage: 900 MG X CONTINUOUS
     Route: 042
     Dates: start: 20211027
  13. CASPOFUNGIN [Concomitant]
     Active Substance: CASPOFUNGIN
     Indication: Prophylaxis
     Dosage: 50 MG X 1 X 24 HOURS
     Route: 042
     Dates: start: 20211028
  14. CEFEPIME [Concomitant]
     Active Substance: CEFEPIME HYDROCHLORIDE
     Indication: Prophylaxis
     Dosage: 2000 MG X 1 X 8 HOURS
     Route: 042
     Dates: start: 20211021, end: 20211024
  15. CINITAPRIDE [Concomitant]
     Active Substance: CINITAPRIDE
     Indication: Prophylaxis
     Dosage: 5 MG X 1 X 8 HOURS
     Route: 042
     Dates: start: 20211029
  16. CISATRACURIO [Concomitant]
     Indication: Prophylaxis
     Dosage: 10 MG X 1 X 24 HOURS
     Route: 042
     Dates: start: 20211029
  17. FITOMETADIONA [Concomitant]
     Indication: Prophylaxis
     Dosage: 10 MG X 1 X 24 HOURS
     Route: 042
     Dates: start: 20211026
  18. ALBUMIN HUMAN [Concomitant]
     Active Substance: ALBUMIN HUMAN
     Indication: Prophylaxis
     Dosage: 20 MG X 1 X 6 HOURS
     Route: 042
     Dates: start: 20211027
  19. LORAZEPAM [Concomitant]
     Active Substance: LORAZEPAM
     Indication: Prophylaxis
     Dosage: 1 MG X 1 X 1 DAYS
     Route: 048
     Dates: start: 20211015, end: 20211027
  20. MEROPENEM [Concomitant]
     Active Substance: MEROPENEM
     Indication: Antibiotic prophylaxis
     Dosage: 1000 MG X 1 X 24 HOURS
     Route: 042
     Dates: start: 20211024
  21. ONDASENTRON [Concomitant]
     Indication: Prophylaxis of nausea and vomiting
     Dosage: 8 MG X PRN
     Route: 042
     Dates: start: 20211016, end: 20211019
  22. PANTOPRAZOLE [Concomitant]
     Active Substance: PANTOPRAZOLE
     Indication: Prophylaxis
     Dosage: 40 MG X 1 X 1 DAYS
     Route: 048
     Dates: start: 20211016
  23. PFIZER COVID 19 VACCINE  (THIRD DOSE) [Concomitant]
     Indication: COVID-19 immunisation
     Dosage: 1 APPLICATION X ONCE
     Route: 030
     Dates: start: 20210928, end: 20210928
  24. POLARAMINE [Concomitant]
     Active Substance: DEXCHLORPHENIRAMINE MALEATE
     Indication: Premedication
     Dosage: 5 MG X ONCE
     Route: 042
     Dates: start: 20211021, end: 20211021
  25. PROPOFOL [Concomitant]
     Active Substance: PROPOFOL
     Indication: Sedative therapy
     Dosage: 200 MG X ONCE
     Route: 042
     Dates: start: 20211011, end: 20211011
  26. PUNTUALSENNA [Concomitant]
     Indication: Laxative supportive care
     Dosage: 8 APPLICATION X 1 X 8 HOURS
     Route: 048
     Dates: start: 20211018

REACTIONS (5)
  - Cytokine release syndrome [Fatal]
  - Acute kidney injury [Not Recovered/Not Resolved]
  - Haemophagocytic lymphohistiocytosis [Not Recovered/Not Resolved]
  - Aspergillus infection [Not Recovered/Not Resolved]
  - Staphylococcal infection [Not Recovered/Not Resolved]

NARRATIVE: CASE EVENT DATE: 20211021
